FAERS Safety Report 17417208 (Version 1)
Quarter: 2020Q1

REPORT INFORMATION
  Report Type: Spontaneous
  Country: FR (occurrence: FR)
  Receive Date: 20200214
  Receipt Date: 20200214
  Transmission Date: 20200409
  Serious: Yes (Other)
  Sender: FDA-Public Use
  Company Number: FR-MYLANLABS-2020M1016303

PATIENT
  Age: 19 Year
  Sex: Female

DRUGS (1)
  1. ETHINYLESTRADIOL/LEVONORGESTREL [Suspect]
     Active Substance: ETHINYL ESTRADIOL\LEVONORGESTREL
     Indication: CONTRACEPTION
     Dosage: UNK (UNK 1 CP 21J/28J)
     Route: 048
     Dates: end: 201906

REACTIONS (1)
  - Meningioma [Not Recovered/Not Resolved]

NARRATIVE: CASE EVENT DATE: 201906
